FAERS Safety Report 11831797 (Version 25)
Quarter: 2017Q2

REPORT INFORMATION
  Report Type: Spontaneous
  Country: US (occurrence: US)
  Receive Date: 20151214
  Receipt Date: 20170616
  Transmission Date: 20170829
  Serious: Yes (Hospitalization, Other)
  Sender: FDA-Public Use
  Company Number: US-009507513-1512USA001546

PATIENT
  Age: 79 Year
  Sex: Male
  Weight: 97.51 kg

DRUGS (15)
  1. XARELTO [Suspect]
     Active Substance: RIVAROXABAN
     Dosage: UNK / RESTARTED WHEN DISCHARGED FROM THE HOSPITAL
     Dates: start: 20160721
  2. HYDRALAZINE [Concomitant]
     Active Substance: HYDRALAZINE HYDROCHLORIDE
     Indication: HYPERTENSION
     Dosage: 25 MG, THREE TIMES A DAY
     Dates: end: 201607
  3. KEYTRUDA [Suspect]
     Active Substance: PEMBROLIZUMAB
     Dosage: UNK, EVERY THREE WEEKS
     Route: 042
     Dates: start: 20160808
  4. LASIX [Concomitant]
     Active Substance: FUROSEMIDE
     Dosage: UNK, MONDAY, WEDNESDAY AND FRIDAY
  5. KEYTRUDA [Suspect]
     Active Substance: PEMBROLIZUMAB
     Indication: METASTATIC MALIGNANT MELANOMA
     Dosage: UNK, EVERY THREE WEEKS
     Route: 042
     Dates: start: 20150729, end: 20151119
  6. KEYTRUDA [Suspect]
     Active Substance: PEMBROLIZUMAB
     Dosage: UNK, EVERY THREE WEEKS
     Route: 042
     Dates: start: 20160105, end: 2016
  7. KEYTRUDA [Suspect]
     Active Substance: PEMBROLIZUMAB
     Dosage: UNK
     Dates: start: 20170213
  8. XARELTO [Suspect]
     Active Substance: RIVAROXABAN
     Indication: ATRIAL FIBRILLATION
     Dosage: UNK
     Dates: start: 2014, end: 2016
  9. HYDROCHLOROTHIAZIDE. [Concomitant]
     Active Substance: HYDROCHLOROTHIAZIDE
     Dosage: UNK
     Dates: start: 2006
  10. LASIX [Concomitant]
     Active Substance: FUROSEMIDE
     Dosage: UNK ,DAILY
  11. LASIX [Concomitant]
     Active Substance: FUROSEMIDE
     Indication: JOINT SWELLING
     Dosage: WAS INCREASED TO THREE TIMES A WEEK / ON MONDAY, WEDNESDAY AND FRIDAY
  12. BLOOD THINNER (UNSPECIFIED) [Concomitant]
     Active Substance: UNSPECIFIED INGREDIENT
  13. IRON (UNSPECIFIED) [Concomitant]
     Active Substance: IRON
     Dosage: UNK
  14. LASIX [Concomitant]
     Active Substance: FUROSEMIDE
     Dosage: FROM PREVIOUSLY TAKING IT ONCE A WEEK
  15. HYDRALAZINE [Concomitant]
     Active Substance: HYDRALAZINE HYDROCHLORIDE
     Dosage: 50 MG, THREE TIMES A DAY
     Dates: start: 201607

REACTIONS (36)
  - Weight decreased [Not Recovered/Not Resolved]
  - Chills [Not Recovered/Not Resolved]
  - Fatigue [Not Recovered/Not Resolved]
  - Weight increased [Unknown]
  - Impaired healing [Unknown]
  - Spleen disorder [Unknown]
  - Constipation [Unknown]
  - Urinary retention [Unknown]
  - Prostatic disorder [Unknown]
  - Atrial fibrillation [Unknown]
  - Therapeutic response unexpected [Unknown]
  - Electrocardiogram abnormal [Unknown]
  - Endodontic procedure [Unknown]
  - Pleural effusion [Recovered/Resolved]
  - Haemorrhage urinary tract [Not Recovered/Not Resolved]
  - Heart rate abnormal [Recovering/Resolving]
  - Blood iron decreased [Unknown]
  - Herpes zoster [Recovering/Resolving]
  - Dyspnoea [Recovering/Resolving]
  - Necrotising fasciitis [Recovering/Resolving]
  - Haemorrhage urinary tract [Unknown]
  - Hypertension [Not Recovered/Not Resolved]
  - Application site bruise [Unknown]
  - Pollakiuria [Recovering/Resolving]
  - Viral upper respiratory tract infection [Recovering/Resolving]
  - Heart rate abnormal [Unknown]
  - Productive cough [Recovering/Resolving]
  - Asthenia [Not Recovered/Not Resolved]
  - Oesophageal stenosis [Unknown]
  - Bronchitis [Recovered/Resolved]
  - Peripheral swelling [Unknown]
  - Drug dose omission [Unknown]
  - Drug dose omission [Unknown]
  - Adrenal neoplasm [Unknown]
  - Immune system disorder [Unknown]
  - Haematoma [Unknown]

NARRATIVE: CASE EVENT DATE: 20150729
